FAERS Safety Report 9961592 (Version 1)
Quarter: 2014Q1

REPORT INFORMATION
  Report Type: Spontaneous
  Country: AT (occurrence: AT)
  Receive Date: 20140305
  Receipt Date: 20140305
  Transmission Date: 20141002
  Serious: Yes (Other)
  Sender: FDA-Public Use
  Company Number: AT-JNJFOC-20140300260

PATIENT
  Age: 45 Year
  Sex: Male

DRUGS (2)
  1. TRAMAL RETARD [Suspect]
     Indication: BACK PAIN
     Route: 048
  2. PANTOLOC [Suspect]
     Indication: PRODUCT USED FOR UNKNOWN INDICATION
     Route: 065

REACTIONS (1)
  - Adverse event [Unknown]
